FAERS Safety Report 4288536-8 (Version None)
Quarter: 2004Q1

REPORT INFORMATION
  Report Type: 
  Country: None (occurrence: None)
  Receive Date: 20040205
  Receipt Date: 20040122
  Transmission Date: 20041129
  Serious: Yes (Disabling)
  Sender: FDA-Public Use
  Company Number: 2004AP00444

PATIENT
  Age: 54 Year
  Sex: Male

DRUGS (14)
  1. IRESSA [Suspect]
     Indication: NON-SMALL CELL LUNG CANCER
     Dosage: 250 MG DAILY PO
     Route: 048
     Dates: start: 20030628, end: 20030701
  2. IRESSA [Suspect]
     Indication: NON-SMALL CELL LUNG CANCER
     Dosage: 250 MG DAILY PO
     Route: 048
     Dates: start: 20030723, end: 20030911
  3. BEZATOL - SLOW RELEASE [Concomitant]
  4. DIAZEPAM [Concomitant]
  5. OMEPRAZOLE [Concomitant]
  6. SERENAL [Concomitant]
  7. AMLODIN [Concomitant]
  8. VOLTAREN [Concomitant]
  9. PURSENNID [Concomitant]
  10. NOVAMIN [Concomitant]
  11. OXYCONTIN [Concomitant]
  12. MAGNESIUM OXIDE [Concomitant]
  13. MOHRUS TAPE [Concomitant]
  14. RADIATION THERAPY [Concomitant]

REACTIONS (4)
  - MACULAR OEDEMA [None]
  - RETINAL EXUDATES [None]
  - RETINAL HAEMORRHAGE [None]
  - RETINAL VEIN OCCLUSION [None]
